FAERS Safety Report 7424177-9 (Version None)
Quarter: 2011Q2

REPORT INFORMATION
  Report Type: 
  Country: None (occurrence: None)
  Receive Date: 20110419
  Receipt Date: 20110407
  Transmission Date: 20111010
  Serious: Yes (Death, Hospitalization)
  Sender: FDA-Public Use
  Company Number: JP-MERCK-1008USA01440

PATIENT
  Age: 81 Year
  Sex: Male
  Weight: 49 kg

DRUGS (5)
  1. CRESTOR [Concomitant]
     Indication: DYSLIPIDAEMIA
     Route: 048
     Dates: end: 20091104
  2. HYZAAR [Suspect]
     Indication: HYPERTENSION
     Route: 048
     Dates: start: 20090428, end: 20091027
  3. MAINTATE [Suspect]
     Indication: HYPERTROPHIC CARDIOMYOPATHY
     Route: 048
     Dates: end: 20091116
  4. ASPIRIN [Concomitant]
     Indication: PERCUTANEOUS CORONARY INTERVENTION
     Route: 048
     Dates: start: 20010228, end: 20091116
  5. SIGMART [Concomitant]
     Indication: ANGINA PECTORIS
     Route: 048
     Dates: end: 20091107

REACTIONS (2)
  - HYPONATRAEMIA [None]
  - SEPSIS [None]
